FAERS Safety Report 9361027 (Version 1)
Quarter: 2013Q2

REPORT INFORMATION
  Report Type: Spontaneous
  Country: US (occurrence: None)
  Receive Date: 20130620
  Receipt Date: 20130620
  Transmission Date: 20140414
  Serious: Yes (Life-Threatening, Other)
  Sender: FDA-Public Use
  Company Number: None

PATIENT
  Age: 59 Year
  Sex: Female
  Weight: 85.73 kg

DRUGS (2)
  1. MINOXIDIL [Suspect]
     Indication: HAIR GROWTH ABNORMAL
     Dosage: 1/2
  2. PROVENTIL [Concomitant]

REACTIONS (6)
  - Swelling face [None]
  - Dyspnoea [None]
  - Local swelling [None]
  - Anxiety [None]
  - Eye oedema [None]
  - Local swelling [None]
